FAERS Safety Report 7366747-2 (Version None)
Quarter: 2011Q1

REPORT INFORMATION
  Report Type: 
  Country: None (occurrence: None)
  Receive Date: 20110322
  Receipt Date: 20110315
  Transmission Date: 20110831
  Serious: Yes (Hospitalization)
  Sender: FDA-Public Use
  Company Number: US-ROCHE-754175

PATIENT
  Age: 59 Year
  Sex: Female
  Weight: 72.3 kg

DRUGS (6)
  1. BEVACIZUMAB [Suspect]
     Dosage: OVER 30-90 MINUTES ON DAYS 01 AND 15.
     Route: 042
     Dates: start: 20101001, end: 20101029
  2. COUMADIN [Concomitant]
  3. FLEXERIL [Concomitant]
  4. VICODIN [Concomitant]
  5. MIRALAX [Concomitant]
  6. TEMSIROLIMUS [Suspect]
     Dosage: ON DAYS 1, 8, 15 AND 22 (CYCLE: 2)
     Route: 042
     Dates: start: 20101001, end: 20101029

REACTIONS (3)
  - AORTO-DUODENAL FISTULA [None]
  - GASTRIC HAEMORRHAGE [None]
  - DUODENAL PERFORATION [None]
